FAERS Safety Report 16379987 (Version 1)
Quarter: 2019Q2

REPORT INFORMATION
  Report Type: Report from Study
  Country: IT (occurrence: IT)
  Receive Date: 20190531
  Receipt Date: 20190531
  Transmission Date: 20190711
  Serious: Yes (Other)
  Sender: FDA-Public Use
  Company Number: IT-009507513-1905ITA012504

PATIENT
  Age: 27 Year
  Sex: Female

DRUGS (1)
  1. MERCILON [Suspect]
     Active Substance: DESOGESTREL\ETHINYL ESTRADIOL
     Indication: CONTRACEPTION
     Dosage: 1 DOSAGE FORM, CYCLICAL
     Route: 048
     Dates: start: 20190301

REACTIONS (2)
  - Pelvic pain [Unknown]
  - Medication error [Unknown]

NARRATIVE: CASE EVENT DATE: 20190509
